FAERS Safety Report 4655178-1 (Version None)
Quarter: 2005Q2

REPORT INFORMATION
  Report Type: 
  Country: None (occurrence: None)
  Receive Date: 20050506
  Receipt Date: 20050427
  Transmission Date: 20051028
  Serious: Yes (Other)
  Sender: FDA-Public Use
  Company Number: US-GLAXOSMITHKLINE-A0556056A

PATIENT
  Age: 50 Year
  Sex: Male

DRUGS (4)
  1. PAXIL [Suspect]
     Indication: DEPRESSION
     Dosage: 40MG PER DAY
     Route: 048
     Dates: start: 20020801, end: 20050201
  2. AVANDAMET [Suspect]
     Indication: DIABETES MELLITUS NON-INSULIN-DEPENDENT
     Route: 048
  3. AVANDAMET [Concomitant]
  4. KLONOPIN [Concomitant]

REACTIONS (6)
  - ANXIETY [None]
  - ARTHRALGIA [None]
  - DEPRESSION [None]
  - PANIC ATTACK [None]
  - PERSONALITY CHANGE [None]
  - SUICIDAL IDEATION [None]
